FAERS Safety Report 8400416-2 (Version None)
Quarter: 2012Q2

REPORT INFORMATION
  Report Type: 
  Country: None (occurrence: None)
  Receive Date: 20120531
  Receipt Date: 20120523
  Transmission Date: 20120825
  Serious: Yes (Other)
  Sender: FDA-Public Use
  Company Number: US-US-EMD SERONO, INC.-7135139

PATIENT
  Sex: Female
  Weight: 161 kg

DRUGS (5)
  1. REBIF [Suspect]
     Route: 058
     Dates: start: 20120501
  2. PRILOSEC [Concomitant]
     Indication: GASTROOESOPHAGEAL REFLUX DISEASE
  3. NEURONTIN [Concomitant]
     Indication: PRODUCT USED FOR UNKNOWN INDICATION
  4. REBIF [Suspect]
     Indication: MULTIPLE SCLEROSIS
     Route: 058
     Dates: start: 20111103, end: 20120501
  5. UNSPECIFIED MUSCLE RELAXER [Concomitant]
     Indication: MULTIPLE SCLEROSIS

REACTIONS (4)
  - LUNG NEOPLASM [None]
  - OXYGEN SATURATION DECREASED [None]
  - ASTHENIA [None]
  - GASTROOESOPHAGEAL REFLUX DISEASE [None]
